FAERS Safety Report 18705178 (Version 1)
Quarter: 2021Q1

REPORT INFORMATION
  Report Type: Spontaneous
  Country: FR (occurrence: FR)
  Receive Date: 20210106
  Receipt Date: 20210106
  Transmission Date: 20210419
  Serious: Yes (Life-Threatening)
  Sender: FDA-Public Use
  Company Number: FR-TEVA-2020-FR-1864567

PATIENT
  Age: 69 Year
  Sex: Female

DRUGS (7)
  1. VILDAGLIPTINE [Concomitant]
     Active Substance: VILDAGLIPTIN
  2. TRANXENE [Concomitant]
     Active Substance: CLORAZEPATE DIPOTASSIUM
  3. PRAVASTATINE SODIQUE [Concomitant]
     Active Substance: PRAVASTATIN SODIUM
  4. PAROXETINE (CHLORHYDRATE DE) ANHYDRE [Concomitant]
     Active Substance: PAROXETINE
  5. METFORMINE (CHLORHYDRATE DE) [Suspect]
     Active Substance: METFORMIN HYDROCHLORIDE
     Indication: DIABETES MELLITUS
     Dosage: 2550 MG
     Route: 048
     Dates: end: 20201125
  6. BISOPROLOL (FUMARATE ACIDE DE) [Concomitant]
     Active Substance: BISOPROLOL FUMARATE
  7. PERINDOPRIL [Concomitant]
     Active Substance: PERINDOPRIL

REACTIONS (3)
  - Acute kidney injury [Recovering/Resolving]
  - Overdose [Recovering/Resolving]
  - Lactic acidosis [Recovering/Resolving]

NARRATIVE: CASE EVENT DATE: 20201125
